FAERS Safety Report 25123238 (Version 4)
Quarter: 2025Q4

REPORT INFORMATION
  Report Type: Spontaneous
  Country: US (occurrence: US)
  Receive Date: 20250326
  Receipt Date: 20251218
  Transmission Date: 20260118
  Serious: No
  Sender: SANOFI AVENTIS
  Company Number: US-SA-2025SA086426

PATIENT
  Age: 38 Year
  Sex: Female
  Weight: 81.633 kg

DRUGS (18)
  1. DUPIXENT [Suspect]
     Active Substance: DUPILUMAB
     Indication: Asthma
     Dosage: 300 MG, QOW
     Route: 058
     Dates: end: 2025
  2. DUPIXENT [Suspect]
     Active Substance: DUPILUMAB
     Dosage: 300 MG, QOW
     Route: 058
     Dates: start: 2025
  3. LEVOTHYROXINE SODIUM [Concomitant]
     Active Substance: LEVOTHYROXINE SODIUM
  4. MONTELUKAST SODIUM [Concomitant]
     Active Substance: MONTELUKAST SODIUM
  5. ADALIMUMAB ADBM [Concomitant]
  6. OMEPRAZOLE [Concomitant]
     Active Substance: OMEPRAZOLE
  7. PREDNISOLONE SODIUM PHOSPHATE [Concomitant]
     Active Substance: PREDNISOLONE SODIUM PHOSPHATE
  8. DOXYCYCLINE HYCLATE [Concomitant]
     Active Substance: DOXYCYCLINE HYCLATE
  9. METRONIDAZOLE [Concomitant]
     Active Substance: METRONIDAZOLE
  10. KETOCONAZOLE [Concomitant]
     Active Substance: KETOCONAZOLE
  11. AMPICILLIN TRIHYDRATE\CLAVULANATE POTASSIUM [Concomitant]
     Active Substance: AMPICILLIN TRIHYDRATE\CLAVULANATE POTASSIUM
  12. BUDESONIDE [Concomitant]
     Active Substance: BUDESONIDE
  13. CHOLESTYRAMINE [Concomitant]
     Active Substance: CHOLESTYRAMINE
  14. SPIRIVA RESPIMAT [Concomitant]
     Active Substance: TIOTROPIUM BROMIDE
  15. SYMBICORT [Concomitant]
     Active Substance: BUDESONIDE\FORMOTEROL FUMARATE DIHYDRATE
  16. IDACIO [Concomitant]
     Active Substance: ADALIMUMAB-AACF
  17. SPIRIVA [Concomitant]
     Active Substance: TIOTROPIUM BROMIDE MONOHYDRATE
     Dosage: UNK
  18. XYZAL [Concomitant]
     Active Substance: LEVOCETIRIZINE DIHYDROCHLORIDE
     Dosage: UNK

REACTIONS (6)
  - Epistaxis [Unknown]
  - Back disorder [Unknown]
  - Sinusitis [Unknown]
  - Back pain [Unknown]
  - Surgery [Unknown]
  - Nasal operation [Unknown]

NARRATIVE: CASE EVENT DATE: 20250101
